FAERS Safety Report 13527427 (Version 2)
Quarter: 2022Q1

REPORT INFORMATION
  Report Type: Spontaneous
  Country: US (occurrence: US)
  Receive Date: 20170509
  Receipt Date: 20220203
  Transmission Date: 20220424
  Serious: Yes (Hospitalization, Other)
  Sender: FDA-Public Use
  Company Number: US-PFIZER INC-2017196988

PATIENT
  Age: 55 Year
  Sex: Female
  Weight: 95.25 kg

DRUGS (3)
  1. CARDURA [Suspect]
     Active Substance: DOXAZOSIN MESYLATE
     Indication: Cardiac disorder
     Dosage: 4 MG, 2X/DAY (4MG ORANGE CHUNKS SHE CAN CHEW ONE IN THE MORNING AND ONE AT NIGHT)
  2. ENALAPRIL [Concomitant]
     Active Substance: ENALAPRIL
     Indication: Blood pressure abnormal
     Dosage: 20 MG, 2X/DAY (ONE IN THE MORNING AND ONE AT NIGHT)
  3. LORAZEPAM [Concomitant]
     Active Substance: LORAZEPAM
     Indication: Mental disorder
     Dosage: 0.5 MG, 2X/DAY (ONE IN THE MORNING AND ONE AT NIGHT)
     Route: 048

REACTIONS (7)
  - Cerebrovascular accident [Recovered/Resolved with Sequelae]
  - Seizure [Recovered/Resolved with Sequelae]
  - Aneurysm [Recovered/Resolved with Sequelae]
  - Confusional state [Unknown]
  - Visual impairment [Unknown]
  - Asthenia [Unknown]
  - Intentional product misuse [Unknown]

NARRATIVE: CASE EVENT DATE: 20001008
